FAERS Safety Report 5491351-0 (Version None)
Quarter: 2007Q4

REPORT INFORMATION
  Report Type: 
  Country: None (occurrence: None)
  Receive Date: 20071017
  Receipt Date: 20071002
  Transmission Date: 20080405
  Serious: Yes (Hospitalization)
  Sender: FDA-Public Use
  Company Number: 2007001852

PATIENT
  Age: 58 Year

DRUGS (2)
  1. ERLOTINIB [Suspect]
     Dosage: 150 MG, 1 IN 1 D, ORAL
     Route: 048
     Dates: start: 20070802
  2. PEMETREXED                       (PEMETREXED) [Suspect]
     Dosage: 866 MG, 1 IN 1 D

REACTIONS (1)
  - FEBRILE NEUTROPENIA [None]
